FAERS Safety Report 8223908-8 (Version None)
Quarter: 2012Q1

REPORT INFORMATION
  Report Type: 
  Country: None (occurrence: None)
  Receive Date: 20120320
  Receipt Date: 20120320
  Transmission Date: 20120608
  Serious: Yes (Hospitalization)
  Sender: FDA-Public Use
  Company Number: None

PATIENT
  Sex: Male
  Weight: 98.1 kg

DRUGS (8)
  1. PEG-L-ASPARAGINASE (K-H) [Suspect]
     Dosage: 11050 IU
  2. THIOGUANINE [Suspect]
     Dosage: 1840 MG
  3. METHOTREXATE [Suspect]
     Dosage: 45 MG
  4. VINCRISTINE SULFATE [Suspect]
     Dosage: 10 MG
  5. CYCLOPHOSPHAMIDE [Suspect]
     Dosage: 2210 MG
  6. CYTARABINE [Suspect]
     Dosage: 1328 MG
  7. DEXAMETHASONE [Suspect]
     Dosage: 154 MG
  8. DOXORUBICIN HCL [Suspect]
     Dosage: 165 MG

REACTIONS (5)
  - CLOSTRIDIUM DIFFICILE COLITIS [None]
  - FEBRILE NEUTROPENIA [None]
  - PERIRECTAL ABSCESS [None]
  - SEPTIC SHOCK [None]
  - FISTULA [None]
